FAERS Safety Report 16491791 (Version 4)
Quarter: 2019Q3

REPORT INFORMATION
  Report Type: Report from Study
  Country: US (occurrence: US)
  Receive Date: 20190628
  Receipt Date: 20190927
  Transmission Date: 20191004
  Serious: Yes (Other)
  Sender: FDA-Public Use
  Company Number: PHEH2019US027027

PATIENT
  Sex: Male

DRUGS (1)
  1. COSENTYX [Suspect]
     Active Substance: SECUKINUMAB
     Indication: PSORIASIS
     Dosage: 300 MG, QW (QW FOR 5 WEEKS, THEN QMO)
     Route: 058
     Dates: start: 20190508

REACTIONS (5)
  - Injection site haemorrhage [Unknown]
  - Psoriasis [Unknown]
  - Hypoacusis [Unknown]
  - Skin exfoliation [Unknown]
  - Injection site pain [Unknown]
